FAERS Safety Report 6086318-8 (Version None)
Quarter: 2009Q1

REPORT INFORMATION
  Report Type: 
  Country: None (occurrence: None)
  Receive Date: 20090220
  Receipt Date: 20090213
  Transmission Date: 20090719
  Serious: Yes (Hospitalization)
  Sender: FDA-Public Use
  Company Number: ES-B.I. PHARMACEUTICALS,INC./RIDGEFIELD-2009-ES-00017ES

PATIENT
  Age: 64 Year
  Sex: Male

DRUGS (9)
  1. ATROVENT [Suspect]
     Indication: PNEUMONIA
     Route: 055
     Dates: start: 20080101
  2. MIDAZOLAM HCL [Suspect]
     Indication: SLEEP DISORDER THERAPY
     Dosage: 75MG
     Route: 048
     Dates: start: 20081211, end: 20081213
  3. DURAGESIC-100 [Suspect]
     Indication: ANALGESIA
     Dosage: 75MCG
     Route: 062
     Dates: start: 20081208, end: 20081216
  4. ENANTYUM [Suspect]
     Indication: ANALGESIA
     Dosage: 25MG
     Route: 048
     Dates: start: 20081212, end: 20081216
  5. ESERTIA [Suspect]
     Indication: DEPRESSION
     Dosage: 20MG
     Route: 048
     Dates: start: 20081209, end: 20081216
  6. MST 60 CONTINUS [Suspect]
     Indication: ANALGESIA
     Dosage: 60MG
     Route: 048
     Dates: start: 20081209, end: 20081213
  7. PRIMPERAN [Suspect]
     Route: 048
     Dates: start: 20080101
  8. ROCEPHIN KIT [Suspect]
     Indication: ANTIBIOTIC THERAPY
     Dosage: 1 G/3,5 ML
     Route: 030
     Dates: start: 20081213, end: 20081216
  9. TRANSTEC [Suspect]
     Route: 062
     Dates: start: 20081101, end: 20081208

REACTIONS (2)
  - HEPATIC ENCEPHALOPATHY [None]
  - HEPATITIS FULMINANT [None]
